FAERS Safety Report 25616160 (Version 1)
Quarter: 2025Q3

REPORT INFORMATION
  Report Type: Spontaneous
  Country: EU (occurrence: EU)
  Receive Date: 20250729
  Receipt Date: 20250729
  Transmission Date: 20251020
  Serious: Yes (Hospitalization, Other)
  Sender: ROCHE
  Company Number: EU-ROCHE-10000347879

PATIENT
  Age: 73 Year
  Sex: Male

DRUGS (1)
  1. ATEZOLIZUMAB [Suspect]
     Active Substance: ATEZOLIZUMAB
     Indication: Lung neoplasm malignant
     Route: 065

REACTIONS (7)
  - Immune-mediated lung disease [Unknown]
  - Renal impairment [Recovered/Resolved]
  - Haematuria [Recovering/Resolving]
  - Proteinuria [Unknown]
  - Vasculitis necrotising [Unknown]
  - Necrosis [Unknown]
  - Acute kidney injury [Recovering/Resolving]
